FAERS Safety Report 7868077-9 (Version None)
Quarter: 2011Q4

REPORT INFORMATION
  Report Type: 
  Country: None (occurrence: None)
  Receive Date: 20111028
  Receipt Date: 20111019
  Transmission Date: 20120403
  Serious: Yes (Other)
  Sender: FDA-Public Use
  Company Number: US-ASTRAZENECA-2011SE63441

PATIENT
  Age: 44 Year
  Sex: Female
  Weight: 49.4 kg

DRUGS (3)
  1. SEROQUEL XR [Suspect]
     Indication: DEPRESSION
     Route: 048
     Dates: start: 20111017
  2. SEROQUEL XR [Suspect]
     Indication: NERVOUSNESS
     Route: 048
     Dates: start: 20111017
  3. SYNTHROID [Concomitant]
     Indication: THYROID DISORDER

REACTIONS (8)
  - PARAESTHESIA [None]
  - HEADACHE [None]
  - LOSS OF CONSCIOUSNESS [None]
  - HYPOPNOEA [None]
  - COORDINATION ABNORMAL [None]
  - RASH [None]
  - VOMITING [None]
  - OFF LABEL USE [None]
